FAERS Safety Report 5489381-8 (Version None)
Quarter: 2007Q4

REPORT INFORMATION
  Report Type: 
  Country: None (occurrence: None)
  Receive Date: 20071005
  Receipt Date: 20070605
  Transmission Date: 20080405
  Serious: No
  Sender: FDA-Public Use
  Company Number: PHEH2007US07550

PATIENT
  Age: 83 Year
  Sex: Male

DRUGS (12)
  1. TEKTURNA [Suspect]
     Indication: HYPERTENSION
     Dosage: 150 MG, ONCE/SINGLE, ORAL
     Route: 048
     Dates: start: 20070514, end: 20070514
  2. PLAVIX [Concomitant]
  3. ASPIRIN [Concomitant]
  4. GALANTAMINE HYDROBROMIDE [Concomitant]
  5. FUROSEMIDE [Concomitant]
  6. SYNTHROID [Concomitant]
  7. VYTORIN [Concomitant]
  8. BENICAR [Concomitant]
  9. ZOLOFT [Concomitant]
  10. TOPROL-XL [Concomitant]
  11. ACE INHIBITOR NOS (NO INGREDIENTS/SUBSTANCES) [Concomitant]
  12. BENADRYL (AMMONIUM CHLORIDE, DIPHENHYDRAMINE HYDROCHLORIDE, MENTHOL, S [Concomitant]

REACTIONS (4)
  - DYSPHAGIA [None]
  - ODYNOPHAGIA [None]
  - PHARYNGEAL OEDEMA [None]
  - THROAT IRRITATION [None]
